FAERS Safety Report 5650683-3 (Version None)
Quarter: 2008Q1

REPORT INFORMATION
  Report Type: 
  Country: None (occurrence: None)
  Receive Date: 20080305
  Receipt Date: 20080305
  Transmission Date: 20080703
  Serious: Yes (Death)
  Sender: FDA-Public Use
  Company Number: None

PATIENT
  Age: 59 Year
  Sex: Female

DRUGS (1)
  1. HEPARIN [Suspect]
     Indication: DIALYSIS
     Dosage: ESTIMATE
     Dates: start: 20070201, end: 20071211

REACTIONS (6)
  - BACTERIAL INFECTION [None]
  - DYSPNOEA [None]
  - GENERAL PHYSICAL HEALTH DETERIORATION [None]
  - HYPOTENSION [None]
  - SEPSIS [None]
  - UNRESPONSIVE TO STIMULI [None]
